FAERS Safety Report 9448599 (Version 1)
Quarter: 2013Q3

REPORT INFORMATION
  Report Type: Spontaneous
  Country: US (occurrence: US)
  Receive Date: 20130808
  Receipt Date: 20130808
  Transmission Date: 20140515
  Serious: No
  Sender: FDA-Public Use
  Company Number: US-009507513-1307USA013511

PATIENT
  Sex: Female

DRUGS (2)
  1. PEGINTRON [Suspect]
     Dosage: 120 MICROGRAM, QW
     Route: 058
  2. REBETOL [Suspect]
     Dosage: UNK
     Route: 048

REACTIONS (5)
  - Hepatic function abnormal [Unknown]
  - Anaemia [Unknown]
  - Incorrect product storage [Unknown]
  - Malaise [Unknown]
  - Decreased appetite [Unknown]
